FAERS Safety Report 8838830 (Version 2)
Quarter: 2013Q4

REPORT INFORMATION
  Report Type: Report from Study
  Country: US (occurrence: US)
  Receive Date: 20121013
  Receipt Date: 20131119
  Transmission Date: 20140711
  Serious: Yes (Hospitalization)
  Sender: FDA-Public Use
  Company Number: US-US-EMD SERONO, INC.-7166032

PATIENT
  Age: 50 Year
  Sex: Female

DRUGS (2)
  1. REBIF [Suspect]
     Indication: MULTIPLE SCLEROSIS
     Route: 058
     Dates: start: 20081112
  2. REBIF [Suspect]
     Route: 058
     Dates: start: 201209

REACTIONS (5)
  - Acute respiratory failure [Unknown]
  - Sepsis [Unknown]
  - Cardiac failure congestive [Unknown]
  - Staphylococcal infection [Unknown]
  - Pneumonia [Unknown]
